FAERS Safety Report 5781911-1 (Version None)
Quarter: 2008Q2

REPORT INFORMATION
  Report Type: 
  Country: None (occurrence: None)
  Receive Date: 20080623
  Receipt Date: 20070612
  Transmission Date: 20081010
  Serious: Yes (Other)
  Sender: FDA-Public Use
  Company Number: B0476079A

PATIENT
  Age: 56 Year
  Sex: Female

DRUGS (3)
  1. ROSIGLITAZONE MALEATE AND METFORMIN HCL [Suspect]
     Route: 065
  2. PROPRANOLOL [Concomitant]
     Route: 065
  3. PROPYL-THIOURACIL [Concomitant]
     Route: 065

REACTIONS (12)
  - ANTI-THYROID ANTIBODY [None]
  - DIPLOPIA [None]
  - DISEASE PROGRESSION [None]
  - ENDOCRINE OPHTHALMOPATHY [None]
  - EXOPHTHALMOS [None]
  - EYELID RETRACTION [None]
  - FAT TISSUE INCREASED [None]
  - OPTIC NEUROPATHY [None]
  - PAPILLARY THYROID CANCER [None]
  - PUPILLARY REFLEX IMPAIRED [None]
  - THYROID NEOPLASM [None]
  - WAIST CIRCUMFERENCE INCREASED [None]
